FAERS Safety Report 19044958 (Version 1)
Quarter: 2021Q1

REPORT INFORMATION
  Report Type: Spontaneous
  Country: US (occurrence: US)
  Receive Date: 20210323
  Receipt Date: 20210323
  Transmission Date: 20210420
  Serious: Yes (Hospitalization)
  Sender: FDA-Public Use
  Company Number: None

PATIENT
  Age: 49 Year
  Sex: Female

DRUGS (2)
  1. COLESTID [Concomitant]
     Active Substance: COLESTIPOL HYDROCHLORIDE
  2. SPRYCEL [Suspect]
     Active Substance: DASATINIB
     Indication: CHRONIC MYELOID LEUKAEMIA
     Dosage: ?          OTHER FREQUENCY:QOD;?
     Route: 048
     Dates: start: 20191119

REACTIONS (3)
  - Norovirus test positive [None]
  - Dehydration [None]
  - Platelet count increased [None]

NARRATIVE: CASE EVENT DATE: 20210301
